FAERS Safety Report 23936166 (Version 2)
Quarter: 2024Q2

REPORT INFORMATION
  Report Type: Spontaneous
  Country: JP (occurrence: JP)
  Receive Date: 20240604
  Receipt Date: 20240618
  Transmission Date: 20240716
  Serious: Yes (Other)
  Sender: FDA-Public Use
  Company Number: JP-SUN PHARMACEUTICAL INDUSTRIES LTD-2024RR-449832

PATIENT
  Age: 81 Year
  Sex: Female

DRUGS (5)
  1. CAPECITABINE [Suspect]
     Active Substance: CAPECITABINE
     Indication: Rectal cancer
     Dosage: 2 COURSES OF XELOX + BMAB
     Route: 065
  2. CAPECITABINE [Suspect]
     Active Substance: CAPECITABINE
     Dosage: 4 COURSES OF POSTOPERATIVE ADJUVANT CHEMOTHERAPY WITH XELOX
     Route: 065
  3. OXALIPLATIN [Suspect]
     Active Substance: OXALIPLATIN
     Indication: Rectal cancer
     Dosage: 2 COURSES OF XELOX + BMAB
     Route: 065
  4. OXALIPLATIN [Suspect]
     Active Substance: OXALIPLATIN
     Dosage: 4 COURSES OF POSTOPERATIVE ADJUVANT CHEMOTHERAPY WITH XELOX
  5. BEVACIZUMAB [Suspect]
     Active Substance: BEVACIZUMAB
     Indication: Rectal cancer
     Dosage: 2 COURSES OF XELOX + BMAB
     Route: 065

REACTIONS (2)
  - Interstitial lung disease [Unknown]
  - Tumour invasion [Unknown]
